FAERS Safety Report 23581585 (Version 1)
Quarter: 2024Q1

REPORT INFORMATION
  Report Type: Spontaneous
  Country: CN (occurrence: CN)
  Receive Date: 20240229
  Receipt Date: 20240229
  Transmission Date: 20240410
  Serious: Yes (Hospitalization)
  Sender: FDA-Public Use
  Company Number: CN-PFIZER INC-PV202400027694

PATIENT
  Age: 65 Year
  Sex: Male
  Weight: 38 kg

DRUGS (7)
  1. VFEND [Suspect]
     Active Substance: VORICONAZOLE
     Indication: Pneumonia
     Dosage: 0.2 G, 2X/DAY
     Route: 048
     Dates: start: 20240101, end: 20240103
  2. VFEND [Suspect]
     Active Substance: VORICONAZOLE
     Indication: Bronchopulmonary aspergillosis
  3. VFEND [Suspect]
     Active Substance: VORICONAZOLE
     Indication: Gastric cancer
  4. VFEND [Suspect]
     Active Substance: VORICONAZOLE
     Indication: Neoplasm malignant
  5. VFEND [Suspect]
     Active Substance: VORICONAZOLE
     Indication: Pancreatic carcinoma
  6. VFEND [Suspect]
     Active Substance: VORICONAZOLE
     Indication: Venous thrombosis
  7. VFEND [Suspect]
     Active Substance: VORICONAZOLE
     Indication: Hypoproteinaemia

REACTIONS (1)
  - Hepatic function abnormal [Recovering/Resolving]

NARRATIVE: CASE EVENT DATE: 20240127
